FAERS Safety Report 22937473 (Version 2)
Quarter: 2024Q3

REPORT INFORMATION
  Report Type: Spontaneous
  Country: CN (occurrence: CN)
  Receive Date: 20230913
  Receipt Date: 20240731
  Transmission Date: 20241017
  Serious: Yes (Death, Life-Threatening, Hospitalization, Other)
  Sender: STRIDES
  Company Number: None

PATIENT
  Age: 71 Year
  Sex: Female

DRUGS (12)
  1. CYCLOSPORINE [Suspect]
     Active Substance: CYCLOSPORINE
     Indication: Still^s disease
     Dosage: UNK
     Route: 065
  2. DEXAMETHASONE [Suspect]
     Active Substance: DEXAMETHASONE
     Indication: Still^s disease
     Dosage: INCREASED AGAIN
     Route: 065
     Dates: start: 2022, end: 2022
  3. DEXAMETHASONE [Suspect]
     Active Substance: DEXAMETHASONE
     Dosage: THE TOTAL AMOUNT OF CORTICOSTEROID RECEIVED WAS EQUIVALENT TO 5,193 MG OF PREDNISONE
     Route: 065
     Dates: start: 2022, end: 2022
  4. DEXAMETHASONE [Suspect]
     Active Substance: DEXAMETHASONE
     Dosage: HIGH DOSE
     Route: 065
     Dates: start: 2022, end: 2022
  5. DEXAMETHASONE [Suspect]
     Active Substance: DEXAMETHASONE
     Dosage: REDUCED
     Route: 065
     Dates: start: 2022, end: 2022
  6. METHYLPREDNISOLONE [Suspect]
     Active Substance: METHYLPREDNISOLONE
     Indication: Still^s disease
     Dosage: REDUCED
     Route: 065
     Dates: start: 2022, end: 2022
  7. METHYLPREDNISOLONE [Suspect]
     Active Substance: METHYLPREDNISOLONE
     Dosage: INCREASED AGAIN
     Route: 065
     Dates: start: 2022, end: 2022
  8. METHYLPREDNISOLONE [Suspect]
     Active Substance: METHYLPREDNISOLONE
     Dosage: THE TOTAL AMOUNT OF CORTICOSTEROID RECEIVED WAS EQUIVALENT TO 5,193 MG OF PREDNISONE
     Route: 065
     Dates: start: 2022, end: 2022
  9. METHYLPREDNISOLONE [Suspect]
     Active Substance: METHYLPREDNISOLONE
     Dosage: HIGH DOSE
     Route: 065
     Dates: start: 2022, end: 2022
  10. TOCILIZUMAB [Suspect]
     Active Substance: TOCILIZUMAB
     Indication: Still^s disease
     Dosage: 1 DOSE
     Route: 065
  11. CEFTRIAXONE [Concomitant]
     Active Substance: CEFTRIAXONE\CEFTRIAXONE SODIUM
     Indication: Evidence based treatment
     Dosage: UNK
     Route: 042
  12. CEFTRIAXONE [Concomitant]
     Active Substance: CEFTRIAXONE\CEFTRIAXONE SODIUM
     Indication: Antibiotic therapy

REACTIONS (11)
  - Respiratory failure [Fatal]
  - Nocardiosis [Fatal]
  - Pneumonia bacterial [Fatal]
  - Empyema [Fatal]
  - Pneumocystis jirovecii infection [Fatal]
  - Cytomegalovirus infection [Fatal]
  - Klebsiella infection [Fatal]
  - Epstein-Barr virus infection [Fatal]
  - Candida infection [Fatal]
  - Infectious pleural effusion [Fatal]
  - Off label use [Unknown]

NARRATIVE: CASE EVENT DATE: 20220101
